FAERS Safety Report 9780845 (Version 2)
Quarter: 2014Q2

REPORT INFORMATION
  Report Type: Spontaneous
  Country: GB (occurrence: GB)
  Receive Date: 20131224
  Receipt Date: 20140501
  Transmission Date: 20141212
  Serious: Yes (Hospitalization, Other)
  Sender: FDA-Public Use
  Company Number: PHFR2013GB007284

PATIENT
  Sex: Male

DRUGS (5)
  1. CLOZARIL [Suspect]
     Indication: SCHIZOPHRENIA
     Dosage: UNK UKN, UNK
     Route: 048
     Dates: start: 20110802
  2. VALPROATE [Concomitant]
     Indication: PETIT MAL EPILEPSY
     Dosage: 500 MG, DAILY
     Route: 048
  3. FLUVOXAMINE [Concomitant]
     Indication: PROPHYLAXIS
     Dosage: 150 MG, DAILY
     Route: 048
  4. TRIHEXYPHENIDYL [Concomitant]
     Dosage: 2 MG, BID
     Route: 048
  5. THIAZIDE [Concomitant]
     Dosage: 2.5 UKN, UNK
     Route: 048

REACTIONS (5)
  - Anxiety [Unknown]
  - Anaemia [Unknown]
  - Mental impairment [Unknown]
  - Psychotic disorder [Unknown]
  - Agitation [Unknown]
